FAERS Safety Report 6685865-5 (Version None)
Quarter: 2010Q2

REPORT INFORMATION
  Report Type: 
  Country: None (occurrence: None)
  Receive Date: 20100419
  Receipt Date: 20100409
  Transmission Date: 20101027
  Serious: Yes (Other)
  Sender: FDA-Public Use
  Company Number: US-JNJFOC-20080106479

PATIENT
  Sex: Female
  Weight: 63.5 kg

DRUGS (18)
  1. LEVAQUIN [Suspect]
     Indication: INFECTION
     Route: 048
  2. LEVAQUIN [Suspect]
     Route: 048
  3. LEVAQUIN [Suspect]
     Route: 048
  4. LEVAQUIN [Suspect]
     Indication: KIDNEY INFECTION
     Route: 048
  5. LEVAQUIN [Suspect]
     Route: 048
  6. LEVAQUIN [Suspect]
     Route: 048
  7. LEVAQUIN [Suspect]
     Indication: URINARY TRACT INFECTION
     Route: 048
  8. LEVAQUIN [Suspect]
     Route: 048
  9. LEVAQUIN [Suspect]
     Route: 048
  10. LEVAQUIN [Suspect]
     Route: 042
  11. VICODIN [Concomitant]
     Route: 065
  12. PREMPRO [Concomitant]
     Route: 065
  13. CALCITONIN SALMON SYNTHETIC [Concomitant]
     Route: 065
  14. CALCIUM [Concomitant]
     Route: 065
  15. FLUCONAZOLE [Concomitant]
     Route: 065
  16. ALAVERT [Concomitant]
     Route: 065
  17. ZETIA [Concomitant]
     Route: 065
  18. HORMONE REPLACEMENT THERAPY [Concomitant]
     Route: 065

REACTIONS (9)
  - ASTHENIA [None]
  - DYSPNOEA [None]
  - FORMICATION [None]
  - HEMIPLEGIA [None]
  - NEURALGIA [None]
  - PAIN IN EXTREMITY [None]
  - PERIORBITAL OEDEMA [None]
  - PRESYNCOPE [None]
  - TENDON PAIN [None]
